FAERS Safety Report 14407602 (Version 1)
Quarter: 2018Q1

REPORT INFORMATION
  Report Type: Spontaneous
  Country: US (occurrence: US)
  Receive Date: 20180112
  Receipt Date: 20180112
  Transmission Date: 20180509
  Serious: Yes (Other)
  Sender: FDA-Public Use
  Company Number: None

PATIENT
  Age: 33 Year
  Sex: Male
  Weight: 80.74 kg

DRUGS (6)
  1. BUPROPION XL 150MG TAB 30 [Suspect]
     Active Substance: BUPROPION HYDROCHLORIDE
     Indication: ATTENTION DEFICIT/HYPERACTIVITY DISORDER
     Dosage: 300MG AND 150MG 1 OF EACH PILL ONCE UPON WAKENING BY MOUTH
     Route: 048
     Dates: start: 20170127, end: 20170702
  2. WELLBUTRIN [Concomitant]
     Active Substance: BUPROPION HYDROCHLORIDE
  3. ADDORALL [Concomitant]
  4. BUPROPION HCL ER (XL) 300MG TB24 [Suspect]
     Active Substance: BUPROPION HYDROCHLORIDE
     Indication: DEPRESSION
     Dosage: 300MG AND 150MG 1 OF EACH PILL ONCE UPON WAKENING BY MOUTH
     Route: 048
     Dates: start: 20170127, end: 20170702
  5. BUPROPION XL 150MG TAB 30 [Suspect]
     Active Substance: BUPROPION HYDROCHLORIDE
     Indication: DEPRESSION
     Dosage: 300MG AND 150MG 1 OF EACH PILL ONCE UPON WAKENING BY MOUTH
     Route: 048
     Dates: start: 20170127, end: 20170702
  6. BUPROPION HCL ER (XL) 300MG TB24 [Suspect]
     Active Substance: BUPROPION HYDROCHLORIDE
     Indication: ATTENTION DEFICIT/HYPERACTIVITY DISORDER
     Dosage: 300MG AND 150MG 1 OF EACH PILL ONCE UPON WAKENING BY MOUTH
     Route: 048
     Dates: start: 20170127, end: 20170702

REACTIONS (8)
  - Swelling face [None]
  - Condition aggravated [None]
  - Attention deficit/hyperactivity disorder [None]
  - Anxiety [None]
  - Depression [None]
  - Flushing [None]
  - Hypersensitivity [None]
  - Insomnia [None]

NARRATIVE: CASE EVENT DATE: 20170702
